FAERS Safety Report 23683088 (Version 1)
Quarter: 2024Q1

REPORT INFORMATION
  Report Type: Spontaneous
  Country: CN (occurrence: CN)
  Receive Date: 20240328
  Receipt Date: 20240328
  Transmission Date: 20240409
  Serious: Yes (Hospitalization)
  Sender: FDA-Public Use
  Company Number: CN-002147023-NVSC2024CN062918

PATIENT
  Age: 68 Year
  Sex: Female

DRUGS (2)
  1. CARBAMAZEPINE [Suspect]
     Active Substance: CARBAMAZEPINE
     Indication: Trigeminal neuralgia
     Dosage: 3 DOSAGE FORM, BID, 3 TABLETS, ORALLY, BOTH IN THE MORNING AND EVENING
     Route: 048
  2. GABAPENTIN [Suspect]
     Active Substance: GABAPENTIN
     Indication: Trigeminal neuralgia
     Dosage: UNK
     Route: 065

REACTIONS (2)
  - Pain [Recovering/Resolving]
  - Drug ineffective [Recovering/Resolving]
